FAERS Safety Report 8493486-7 (Version None)
Quarter: 2012Q3

REPORT INFORMATION
  Report Type: 
  Country: None (occurrence: None)
  Receive Date: 20120706
  Receipt Date: 20120628
  Transmission Date: 20120928
  Serious: Yes (Other)
  Sender: FDA-Public Use
  Company Number: US-AMGEN-USASP2012035526

PATIENT
  Age: 34 Year
  Sex: Male

DRUGS (7)
  1. PROGRAF [Concomitant]
     Dosage: UNK
  2. EPOGEN [Suspect]
  3. PREDNISOLONE [Concomitant]
     Dosage: UNK
  4. EPOGEN [Suspect]
     Indication: RENAL TRANSPLANT
     Dosage: UNK
  5. AZATHIOPRINE [Concomitant]
     Dosage: UNK
     Dates: start: 20040101
  6. ARANESP [Suspect]
     Indication: RENAL TRANSPLANT
     Dosage: UNK
  7. FLUDROCORTISONE ACETATE [Concomitant]
     Dosage: UNK

REACTIONS (4)
  - IRON OVERLOAD [None]
  - ANAEMIA [None]
  - ANTI-ERYTHROPOIETIN ANTIBODY POSITIVE [None]
  - APLASIA PURE RED CELL [None]
